FAERS Safety Report 9986045 (Version 1)
Quarter: 2014Q1

REPORT INFORMATION
  Report Type: Report from Study
  Country: US (occurrence: US)
  Receive Date: 20140307
  Receipt Date: 20140307
  Transmission Date: 20141002
  Serious: No
  Sender: FDA-Public Use
  Company Number: US-ABBVIE-13P-163-1088814-00

PATIENT
  Age: 23 Year
  Sex: Female

DRUGS (8)
  1. HUMIRA [Suspect]
     Indication: CROHN^S DISEASE
     Dates: start: 20130110
  2. ENTOCORT [Concomitant]
     Indication: CROHN^S DISEASE
     Route: 048
  3. LEXAPRO [Concomitant]
     Indication: ANXIETY
     Route: 048
  4. LEXAPRO [Concomitant]
     Indication: DEPRESSION
  5. IRON [Concomitant]
     Indication: ANAEMIA
     Route: 048
  6. BIRTH CONTROL PILL [Concomitant]
     Indication: PRODUCT USED FOR UNKNOWN INDICATION
     Route: 048
  7. PROTONIX [Concomitant]
     Indication: GASTROOESOPHAGEAL REFLUX DISEASE
     Route: 048
  8. PROTONIX [Concomitant]
     Indication: CROHN^S DISEASE

REACTIONS (1)
  - Inflammation [Recovering/Resolving]
